FAERS Safety Report 23396428 (Version 1)
Quarter: 2024Q1

REPORT INFORMATION
  Report Type: Report from Study
  Country: IT (occurrence: IT)
  Receive Date: 20240112
  Receipt Date: 20240112
  Transmission Date: 20240410
  Serious: Yes (Other)
  Sender: FDA-Public Use
  Company Number: None

PATIENT
  Age: 55 Year
  Sex: Male
  Weight: 80 kg

DRUGS (2)
  1. IRINOTECAN [Suspect]
     Active Substance: IRINOTECAN
     Indication: Astrocytoma
     Dosage: START OF THERAPY 21-JAN-2022 - 19 CYCLE - THERAPY EVERY 14 DAYS
     Dates: start: 20230120, end: 20230523
  2. BEVACIZUMAB [Suspect]
     Active Substance: BEVACIZUMAB
     Indication: Astrocytoma
     Dosage: START OF THERAPY 21-JAN-2022 - THERAPY EVERY 14 DAYS - 19 CYCLE
     Dates: start: 20230120, end: 20230120

REACTIONS (3)
  - Azotaemia [Recovering/Resolving]
  - Diarrhoea [Recovered/Resolved]
  - Off label use [Unknown]

NARRATIVE: CASE EVENT DATE: 20230101
